FAERS Safety Report 6250326-4 (Version None)
Quarter: 2009Q2

REPORT INFORMATION
  Report Type: 
  Country: None (occurrence: None)
  Receive Date: 20090626
  Receipt Date: 20090626
  Transmission Date: 20091009
  Serious: Yes (Other)
  Sender: FDA-Public Use
  Company Number: None

PATIENT
  Age: 51 Year
  Sex: Female
  Weight: 68.0396 kg

DRUGS (1)
  1. ZICAM COLD REMEDY NASAL GEL ZINCUM GLUCONICUM 2X ZICAM.COM [Suspect]
     Indication: NASOPHARYNGITIS
     Dosage: ONE PUMP OF BOTTLE EVERY 4 HOURS ENDOSINUSIAL
     Route: 006
     Dates: start: 20050102, end: 20081230

REACTIONS (1)
  - HYPOSMIA [None]
